FAERS Safety Report 11100408 (Version 1)
Quarter: 2015Q2

REPORT INFORMATION
  Report Type: Spontaneous
  Country: US (occurrence: US)
  Receive Date: 20150508
  Receipt Date: 20150508
  Transmission Date: 20150821
  Serious: No
  Sender: FDA-Public Use
  Company Number: US-BAYER-2015-198886

PATIENT
  Age: 71 Year
  Sex: Male

DRUGS (1)
  1. BETASERON [Suspect]
     Active Substance: INTERFERON BETA-1B
     Indication: MULTIPLE SCLEROSIS
     Dosage: DAILY DOSE .3 MG
     Route: 058
     Dates: start: 2000, end: 20150420

REACTIONS (3)
  - Influenza like illness [None]
  - Intentional product misuse [None]
  - Injection site mass [None]

NARRATIVE: CASE EVENT DATE: 201504
